FAERS Safety Report 15920841 (Version 1)
Quarter: 2019Q1

REPORT INFORMATION
  Report Type: Report from Study
  Country: DE (occurrence: DE)
  Receive Date: 20190205
  Receipt Date: 20190205
  Transmission Date: 20190417
  Serious: Yes (Death, Hospitalization, Other)
  Sender: FDA-Public Use
  Company Number: DE-MYLANLABS-2019M1009432

PATIENT
  Age: 76 Year
  Sex: Male

DRUGS (2)
  1. HEPARIN [Suspect]
     Active Substance: HEPARIN SODIUM
     Indication: PRODUCT USED FOR UNKNOWN INDICATION
     Dosage: UNK
     Route: 065
  2. ELIQUIS [Suspect]
     Active Substance: APIXABAN
     Indication: ANTIPHOSPHOLIPID SYNDROME
     Dosage: 10 MILLIGRAM, BID (5 MG, BID)
     Route: 065
     Dates: start: 20180328, end: 20180409

REACTIONS (5)
  - Blood urine present [Unknown]
  - Cerebral haemorrhage [Fatal]
  - Product use in unapproved indication [Unknown]
  - Hypertensive crisis [Unknown]
  - Brain herniation [Fatal]
